FAERS Safety Report 6750291-7 (Version None)
Quarter: 2010Q2

REPORT INFORMATION
  Report Type: 
  Country: None (occurrence: None)
  Receive Date: 20100601
  Receipt Date: 20100519
  Transmission Date: 20101027
  Serious: Yes (Hospitalization)
  Sender: FDA-Public Use
  Company Number: JP-PFIZER INC-2010053571

PATIENT
  Age: 94 Year
  Sex: Female

DRUGS (8)
  1. HYPEN [Suspect]
     Indication: PERIARTHRITIS
     Dosage: 400 MG, UNK
     Route: 048
     Dates: start: 20100410, end: 20100416
  2. NORVASC [Concomitant]
     Dosage: 2.5 MG/DAY
     Route: 048
     Dates: start: 20100410
  3. ONE-ALPHA [Concomitant]
     Indication: OSTEOPOROSIS
     Dosage: 0.5 UG, DAILY
     Route: 048
     Dates: start: 20100410
  4. TAKEPRON [Concomitant]
     Dosage: 15 MG, DAILY
     Route: 048
     Dates: start: 20100410
  5. ESTRIEL [Concomitant]
     Dosage: 0.5 MG, DAILY
     Route: 048
     Dates: start: 20100410
  6. DIOVANE [Concomitant]
     Dosage: 40 MG, DAILY
     Route: 048
     Dates: start: 20100410
  7. DIART [Concomitant]
     Dosage: 30 MG/DAY
     Route: 048
     Dates: start: 20100410
  8. KELNAC [Concomitant]
     Indication: PERIARTHRITIS
     Dosage: 160 MG/DAY
     Route: 048
     Dates: start: 20100408, end: 20100416

REACTIONS (1)
  - MELAENA [None]
